FAERS Safety Report 9828159 (Version 1)
Quarter: 2013Q4

REPORT INFORMATION
  Report Type: Spontaneous
  Country: US (occurrence: None)
  Receive Date: 20131223
  Receipt Date: 20131223
  Transmission Date: 20140711
  Serious: No
  Sender: FDA-Public Use
  Company Number: 220623LEO

PATIENT
  Age: 53 Year
  Sex: Female

DRUGS (2)
  1. PICATO [Suspect]
     Indication: PHOTOSENSITIVITY REACTION
     Route: 061
     Dates: start: 20130214, end: 20130215
  2. ALEVE (NAPROXEN SODIUM) [Concomitant]

REACTIONS (6)
  - Throat irritation [None]
  - Application site erythema [None]
  - Application site pain [None]
  - Application site exfoliation [None]
  - Headache [None]
  - Application site irritation [None]
